FAERS Safety Report 6219360-4 (Version None)
Quarter: 2009Q2

REPORT INFORMATION
  Report Type: 
  Country: None (occurrence: None)
  Receive Date: 20090609
  Receipt Date: 20090601
  Transmission Date: 20091009
  Serious: Yes (Other)
  Sender: FDA-Public Use
  Company Number: JP-BAYER-200911820BYL

PATIENT
  Age: 39 Year
  Sex: Male
  Weight: 68 kg

DRUGS (12)
  1. FLUDARA [Suspect]
     Indication: DIFFUSE LARGE B-CELL LYMPHOMA STAGE IV
     Route: 042
     Dates: start: 20090121, end: 20090125
  2. ALKERAN [Concomitant]
     Indication: DIFFUSE LARGE B-CELL LYMPHOMA STAGE IV
     Route: 042
     Dates: start: 20090121, end: 20090122
  3. CYLOCIDE [Concomitant]
     Indication: DIFFUSE LARGE B-CELL LYMPHOMA STAGE IV
     Route: 037
     Dates: start: 20090119, end: 20090119
  4. PREDNISOLONE SODIUM SUCCINATE INJ [Concomitant]
     Indication: DIFFUSE LARGE B-CELL LYMPHOMA STAGE IV
     Route: 037
     Dates: start: 20090119, end: 20090119
  5. METHOTREXATE [Concomitant]
     Indication: DIFFUSE LARGE B-CELL LYMPHOMA STAGE IV
     Route: 037
     Dates: start: 20090119, end: 20090119
  6. METHOTREXATE [Concomitant]
     Route: 041
     Dates: start: 20090128, end: 20090128
  7. METHOTREXATE [Concomitant]
     Route: 041
     Dates: start: 20090202, end: 20090202
  8. METHOTREXATE [Concomitant]
     Route: 041
     Dates: start: 20090130, end: 20090130
  9. SANDIMMUNE [Concomitant]
     Route: 041
     Dates: start: 20090128, end: 20090319
  10. SANDIMMUNE [Concomitant]
     Route: 041
     Dates: start: 20090126, end: 20090126
  11. CONCENTRATED RED CELLS [Concomitant]
     Indication: PACKED RED BLOOD CELL TRANSFUSION
     Route: 042
     Dates: start: 20081120, end: 20090420
  12. PLATELETS [Concomitant]
     Indication: PLATELET TRANSFUSION
     Route: 042
     Dates: start: 20090207, end: 20090427

REACTIONS (1)
  - ACUTE GRAFT VERSUS HOST DISEASE IN SKIN [None]
